FAERS Safety Report 7851183-2 (Version None)
Quarter: 2011Q4

REPORT INFORMATION
  Report Type: 
  Country: None (occurrence: None)
  Receive Date: 20111026
  Receipt Date: 20111020
  Transmission Date: 20120403
  Serious: Yes (Hospitalization, Congenital Anomaly, Other)
  Sender: FDA-Public Use
  Company Number: US-ABBOTT-11P-163-0867287-00

PATIENT
  Sex: Male
  Weight: 1.3 kg

DRUGS (1)
  1. HUMIRA [Suspect]
     Indication: MATERNAL EXPOSURE DURING PREGNANCY
     Route: 064

REACTIONS (8)
  - HYPOSPADIAS [None]
  - MATERNAL EXPOSURE DURING PREGNANCY [None]
  - OESOPHAGEAL ATRESIA [None]
  - VENTRICULAR SEPTAL DEFECT [None]
  - PREMATURE BABY [None]
  - CONGENITAL ANOMALY [None]
  - INGUINAL HERNIA [None]
  - TRACHEO-OESOPHAGEAL FISTULA [None]
